FAERS Safety Report 7350910-0 (Version None)
Quarter: 2011Q1

REPORT INFORMATION
  Report Type: 
  Country: None (occurrence: None)
  Receive Date: 20110314
  Receipt Date: 20110222
  Transmission Date: 20110831
  Serious: Yes (Hospitalization)
  Sender: FDA-Public Use
  Company Number: US-NAPPMUNDI-USA-2010-0056826

PATIENT
  Age: 61 Year
  Sex: Male
  Weight: 88.435 kg

DRUGS (1)
  1. OXYCONTIN [Suspect]
     Indication: OSTEOARTHRITIS
     Dosage: 60 MG, UNK

REACTIONS (2)
  - DRUG INEFFECTIVE [None]
  - HOSPITALISATION [None]
